FAERS Safety Report 5345068-3 (Version None)
Quarter: 2007Q2

REPORT INFORMATION
  Report Type: 
  Country: None (occurrence: None)
  Receive Date: 20070605
  Receipt Date: 20070525
  Transmission Date: 20071010
  Serious: Yes (Disabling)
  Sender: FDA-Public Use
  Company Number: JP-SP-2006-03122

PATIENT
  Age: 91 Year
  Sex: Female

DRUGS (1)
  1. IMMUCYST [Suspect]
     Indication: BLADDER CANCER
     Route: 065
     Dates: start: 20060511, end: 20060615

REACTIONS (4)
  - CONJUNCTIVAL HYPERAEMIA [None]
  - EYE DISCHARGE [None]
  - EYE INFLAMMATION [None]
  - VISUAL ACUITY REDUCED [None]
